FAERS Safety Report 7430558-X (Version None)
Quarter: 2011Q2

REPORT INFORMATION
  Report Type: 
  Country: None (occurrence: None)
  Receive Date: 20110421
  Receipt Date: 20100408
  Transmission Date: 20111010
  Serious: No
  Sender: FDA-Public Use
  Company Number: US-ASTRAZENECA-2010SE15389

PATIENT
  Age: 55 Year
  Sex: Male

DRUGS (1)
  1. TOPROL-XL [Suspect]
     Indication: HYPERTENSION
     Route: 048
     Dates: start: 20100101

REACTIONS (4)
  - DEPRESSION [None]
  - FATIGUE [None]
  - NIGHTMARE [None]
  - WEIGHT INCREASED [None]
